FAERS Safety Report 4754019-1 (Version None)
Quarter: 2005Q3

REPORT INFORMATION
  Report Type: 
  Country: None (occurrence: None)
  Receive Date: 20050826
  Receipt Date: 20050817
  Transmission Date: 20060218
  Serious: Yes (Death, Hospitalization)
  Sender: FDA-Public Use
  Company Number: 163-20785-05030128

PATIENT
  Age: 69 Year
  Sex: Male

DRUGS (4)
  1. THALOMID [Suspect]
     Indication: MULTIPLE MYELOMA
     Dosage: 200 MG, DAILY, ORAL
     Route: 048
     Dates: start: 20040501, end: 20040901
  2. THALOMID [Suspect]
     Indication: MULTIPLE MYELOMA
     Dosage: 200 MG, DAILY, ORAL
     Route: 048
     Dates: start: 20020830
  3. OXYCODONE HCL [Concomitant]
  4. SCOPOLAMINE (HYOSCINE) [Concomitant]

REACTIONS (26)
  - ADRENAL INSUFFICIENCY [None]
  - ANAEMIA [None]
  - BLOOD BICARBONATE DECREASED [None]
  - BLOOD SODIUM DECREASED [None]
  - COLD SWEAT [None]
  - COUGH [None]
  - GASTROINTESTINAL DISORDER [None]
  - GRANULOMA [None]
  - HAEMOPTYSIS [None]
  - HEART RATE IRREGULAR [None]
  - HEPATIC FAILURE [None]
  - HIATUS HERNIA [None]
  - HYPERKALAEMIA [None]
  - HYPOCALCAEMIA [None]
  - HYPONATRAEMIA [None]
  - INTERNATIONAL NORMALISED RATIO INCREASED [None]
  - INTERVERTEBRAL DISC DEGENERATION [None]
  - MALIGNANT NEOPLASM PROGRESSION [None]
  - METASTASES TO LIVER [None]
  - MULTIPLE MYELOMA [None]
  - OESOPHAGEAL DISORDER [None]
  - RENAL FAILURE [None]
  - RESPIRATORY DISORDER [None]
  - RHONCHI [None]
  - THERAPY NON-RESPONDER [None]
  - URINARY RETENTION [None]
